FAERS Safety Report 22061153 (Version 1)
Quarter: 2023Q1

REPORT INFORMATION
  Report Type: Spontaneous
  Country: FR (occurrence: FR)
  Receive Date: 20230303
  Receipt Date: 20230303
  Transmission Date: 20230417
  Serious: Yes (Other)
  Sender: FDA-Public Use
  Company Number: None

PATIENT
  Sex: Male

DRUGS (1)
  1. BIMATOPROST [Suspect]
     Active Substance: BIMATOPROST
     Indication: Wrong product administered
     Dosage: 10 GTT
     Dates: start: 20230206

REACTIONS (2)
  - Tremor [Recovered/Resolved]
  - Wrong drug [Unknown]

NARRATIVE: CASE EVENT DATE: 20230206
